FAERS Safety Report 16252006 (Version 1)
Quarter: 2019Q2

REPORT INFORMATION
  Report Type: Report from Study
  Country: US (occurrence: US)
  Receive Date: 20190429
  Receipt Date: 20190429
  Transmission Date: 20190711
  Serious: Yes (Hospitalization, Other)
  Sender: FDA-Public Use
  Company Number: US-JNJFOC-20190403774

PATIENT
  Age: 82 Year
  Sex: Female

DRUGS (15)
  1. VESICARE [Concomitant]
     Active Substance: SOLIFENACIN SUCCINATE
     Route: 048
  2. VITAMIN D2 [Concomitant]
     Active Substance: ERGOCALCIFEROL
     Route: 048
  3. MELATONIN [Concomitant]
     Active Substance: MELATONIN
     Route: 048
  4. DOCUSATE SODIUM. [Concomitant]
     Active Substance: DOCUSATE SODIUM
  5. ONDANSETRON [Concomitant]
     Active Substance: ONDANSETRON
     Indication: NAUSEA
     Route: 048
  6. ONDANSETRON [Concomitant]
     Active Substance: ONDANSETRON
     Indication: NAUSEA
     Route: 048
  7. LOSARTAN POTASSIUM. [Concomitant]
     Active Substance: LOSARTAN POTASSIUM
     Route: 048
  8. IMBRUVICA [Suspect]
     Active Substance: IBRUTINIB
     Indication: WALDENSTROM^S MACROGLOBULINAEMIA
     Route: 048
     Dates: start: 20180324
  9. RIVASTIGMINE. [Concomitant]
     Active Substance: RIVASTIGMINE
  10. ONDANSETRON [Concomitant]
     Active Substance: ONDANSETRON
     Indication: VOMITING
     Route: 048
  11. IMBRUVICA [Suspect]
     Active Substance: IBRUTINIB
     Indication: WALDENSTROM^S MACROGLOBULINAEMIA
     Route: 048
     Dates: start: 20170205, end: 20180323
  12. IMBRUVICA [Suspect]
     Active Substance: IBRUTINIB
     Indication: WALDENSTROM^S MACROGLOBULINAEMIA
     Route: 048
     Dates: start: 20171130, end: 20180511
  13. IMBRUVICA [Suspect]
     Active Substance: IBRUTINIB
     Indication: WALDENSTROM^S MACROGLOBULINAEMIA
     Route: 048
     Dates: start: 20180512
  14. CYANOCOBALAMIN. [Concomitant]
     Active Substance: CYANOCOBALAMIN
  15. ONDANSETRON [Concomitant]
     Active Substance: ONDANSETRON
     Indication: VOMITING
     Route: 048

REACTIONS (14)
  - Pain [Unknown]
  - Pneumonia [Unknown]
  - White blood cell count increased [Unknown]
  - Product dose omission [Unknown]
  - Increased tendency to bruise [Unknown]
  - Compression fracture [Unknown]
  - Ovarian cyst [Unknown]
  - Fatigue [Recovering/Resolving]
  - Insomnia [Unknown]
  - Skin cancer [Unknown]
  - Vitamin B12 deficiency [Unknown]
  - Arthralgia [Unknown]
  - Red blood cell sedimentation rate increased [Unknown]
  - Hypertension [Unknown]

NARRATIVE: CASE EVENT DATE: 201902
